FAERS Safety Report 9952098 (Version 1)
Quarter: 2014Q1

REPORT INFORMATION
  Report Type: Report from Study
  Country: US (occurrence: US)
  Receive Date: 20140304
  Receipt Date: 20140304
  Transmission Date: 20141002
  Serious: No
  Sender: FDA-Public Use
  Company Number: US-ABBVIE-13P-163-1080089-00

PATIENT
  Age: 55 Year
  Sex: Female

DRUGS (6)
  1. HUMIRA [Suspect]
     Indication: COLITIS ULCERATIVE
     Route: 058
     Dates: start: 20130416, end: 20130416
  2. HUMIRA [Suspect]
  3. ASACOL [Concomitant]
     Indication: PRODUCT USED FOR UNKNOWN INDICATION
     Dosage: 3 IN AM AND 3 IN PM
  4. GLYBURIDE [Concomitant]
     Indication: DIABETES MELLITUS
  5. UNKNOWN MEDICATION [Concomitant]
     Indication: BLOOD PRESSURE
  6. METFORMIN [Concomitant]
     Indication: DIABETES MELLITUS

REACTIONS (1)
  - Drug ineffective [Not Recovered/Not Resolved]
